FAERS Safety Report 17789118 (Version 1)
Quarter: 2020Q2

REPORT INFORMATION
  Report Type: Spontaneous
  Country: CA (occurrence: CA)
  Receive Date: 20200514
  Receipt Date: 20200514
  Transmission Date: 20200714
  Serious: No
  Sender: FDA-Public Use
  Company Number: CA-CIPHER-2019-CA-001301

PATIENT
  Age: 43 Year
  Sex: Male

DRUGS (2)
  1. GRAVOL [Suspect]
     Active Substance: DIMENHYDRINATE
     Route: 048
  2. TRAMADOL HYDROCHLORIDE. [Suspect]
     Active Substance: TRAMADOL HYDROCHLORIDE
     Route: 048

REACTIONS (5)
  - Feeding disorder [Recovered/Resolved]
  - Gastrointestinal disorder [Recovered/Resolved]
  - Vomiting [Recovered/Resolved]
  - Dehydration [Recovered/Resolved]
  - Dyspepsia [Recovered/Resolved]
